FAERS Safety Report 16017225 (Version 1)
Quarter: 2019Q1

REPORT INFORMATION
  Report Type: Spontaneous
  Country: US (occurrence: US)
  Receive Date: 20190228
  Receipt Date: 20190228
  Transmission Date: 20190418
  Serious: Yes (Other)
  Sender: FDA-Public Use
  Company Number: US-TEVA-2019-US-1017210

PATIENT
  Age: 64 Year
  Sex: Male

DRUGS (5)
  1. FOSAPREPITANT [Concomitant]
     Active Substance: FOSAPREPITANT
     Indication: SQUAMOUS CELL CARCINOMA OF PHARYNX
     Route: 042
  2. ONDANSETRON [Concomitant]
     Active Substance: ONDANSETRON
     Indication: SQUAMOUS CELL CARCINOMA OF PHARYNX
     Route: 042
  3. CISPLATIN. [Suspect]
     Active Substance: CISPLATIN
     Indication: SQUAMOUS CELL CARCINOMA OF PHARYNX
     Route: 050
  4. DEXAMETHASONE. [Concomitant]
     Active Substance: DEXAMETHASONE
     Indication: SQUAMOUS CELL CARCINOMA OF PHARYNX
     Route: 042
  5. DEXAMETHASONE. [Concomitant]
     Active Substance: DEXAMETHASONE
     Indication: SQUAMOUS CELL CARCINOMA OF PHARYNX
     Route: 048

REACTIONS (1)
  - Drug hypersensitivity [Recovered/Resolved]
